FAERS Safety Report 13978669 (Version 1)
Quarter: 2017Q3

REPORT INFORMATION
  Report Type: Other
  Country: CN (occurrence: CN)
  Receive Date: 20170915
  Receipt Date: 20170915
  Transmission Date: 20171128
  Serious: Yes (Hospitalization)
  Sender: FDA-Public Use
  Company Number: CN-TAKEDA-2017TJP019528

PATIENT
  Age: 61 Year
  Sex: Male
  Weight: 60 kg

DRUGS (2)
  1. ACTOS [Suspect]
     Active Substance: PIOGLITAZONE HYDROCHLORIDE
     Indication: HYPERGLYCAEMIA
     Dosage: 15 MG, QD
     Route: 048
     Dates: start: 20150121, end: 20170522
  2. GLIMEPIRIDE. [Suspect]
     Active Substance: GLIMEPIRIDE
     Indication: HYPERGLYCAEMIA
     Dosage: 2 MG, QD
     Route: 048
     Dates: start: 20150121, end: 20170522

REACTIONS (3)
  - Platelet count decreased [Recovering/Resolving]
  - Wrong technique in product usage process [Unknown]
  - Anaemia [Unknown]

NARRATIVE: CASE EVENT DATE: 20170522
